FAERS Safety Report 18919904 (Version 2)
Quarter: 2021Q2

REPORT INFORMATION
  Report Type: Other
  Country: NL (occurrence: NL)
  Receive Date: 20210222
  Receipt Date: 20210525
  Transmission Date: 20210717
  Serious: No
  Sender: FDA-Public Use
  Company Number: NL-ROCHE-2768993

PATIENT
  Age: 51 Year
  Sex: Female
  Weight: 87 kg

DRUGS (22)
  1. TAVEGIL [Concomitant]
     Active Substance: CLEMASTINE FUMARATE
     Dates: start: 20200619, end: 20200619
  2. PREDNISOLONE. [Concomitant]
     Active Substance: PREDNISOLONE
     Dates: start: 20191108, end: 20191108
  3. ZANTAC [Concomitant]
     Active Substance: RANITIDINE HYDROCHLORIDE
     Indication: PREMEDICATION
     Dates: start: 20190510, end: 20190510
  4. ZANTAC [Concomitant]
     Active Substance: RANITIDINE HYDROCHLORIDE
     Dates: start: 20191108, end: 20191108
  5. OCRELIZUMAB. [Suspect]
     Active Substance: OCRELIZUMAB
     Dosage: 300 MG/ 250 ML
     Route: 042
     Dates: start: 20190524, end: 20190524
  6. PARACETAMOL [Concomitant]
     Active Substance: ACETAMINOPHEN
     Indication: HEADACHE
     Dosage: AS NEEDED
     Route: 048
  7. TAVEGIL [Concomitant]
     Active Substance: CLEMASTINE FUMARATE
     Dates: start: 20210107, end: 20210107
  8. PREDNISOLONE. [Concomitant]
     Active Substance: PREDNISOLONE
     Indication: PREMEDICATION
     Dates: start: 20190510, end: 20190510
  9. PREDNISOLONE. [Concomitant]
     Active Substance: PREDNISOLONE
     Dates: start: 20200619, end: 20200619
  10. TAVEGIL [Concomitant]
     Active Substance: CLEMASTINE FUMARATE
     Indication: PREMEDICATION
     Dates: start: 20190510, end: 20190510
  11. TAVEGIL [Concomitant]
     Active Substance: CLEMASTINE FUMARATE
     Dates: start: 20190524, end: 20190524
  12. OCRELIZUMAB. [Suspect]
     Active Substance: OCRELIZUMAB
     Dosage: 600 MG/ 500 ML
     Route: 042
     Dates: start: 20200619, end: 20200619
  13. OCRELIZUMAB. [Suspect]
     Active Substance: OCRELIZUMAB
     Dosage: 600 MG/ 500 ML
     Route: 042
     Dates: start: 20210107, end: 20210107
  14. PREDNISOLONE. [Concomitant]
     Active Substance: PREDNISOLONE
     Dates: start: 20190524, end: 20190524
  15. OCRELIZUMAB. [Suspect]
     Active Substance: OCRELIZUMAB
     Dosage: 600 MG/ 500 ML
     Route: 042
     Dates: start: 20191108, end: 20191108
  16. PREDNISOLONE. [Concomitant]
     Active Substance: PREDNISOLONE
     Dates: start: 20210107, end: 20210107
  17. OCRELIZUMAB. [Suspect]
     Active Substance: OCRELIZUMAB
     Indication: RELAPSING-REMITTING MULTIPLE SCLEROSIS
     Dosage: 300 MG/ 250 ML
     Route: 042
     Dates: start: 20190510, end: 20190510
  18. TAVEGIL [Concomitant]
     Active Substance: CLEMASTINE FUMARATE
     Dates: start: 20191108, end: 20191108
  19. ZANTAC [Concomitant]
     Active Substance: RANITIDINE HYDROCHLORIDE
     Dates: start: 20200619, end: 20200619
  20. ZANTAC [Concomitant]
     Active Substance: RANITIDINE HYDROCHLORIDE
     Dates: start: 20210107, end: 20210107
  21. PARACETAMOL [Concomitant]
     Active Substance: ACETAMINOPHEN
     Indication: INFUSION RELATED REACTION
     Dosage: AS NEEDED
     Route: 048
     Dates: start: 20191108
  22. ZANTAC [Concomitant]
     Active Substance: RANITIDINE HYDROCHLORIDE
     Dates: start: 20190524, end: 20190524

REACTIONS (1)
  - COVID-19 [Recovered/Resolved]

NARRATIVE: CASE EVENT DATE: 20201128
